FAERS Safety Report 6978412-1 (Version None)
Quarter: 2010Q3

REPORT INFORMATION
  Report Type: 
  Country: None (occurrence: None)
  Receive Date: 20100913
  Receipt Date: 20100901
  Transmission Date: 20110219
  Serious: Yes (Hospitalization)
  Sender: FDA-Public Use
  Company Number: FR-CELGENEUS-056-C5013-10090173

PATIENT
  Sex: Male
  Weight: 61 kg

DRUGS (6)
  1. CC-5013 [Suspect]
     Indication: MULTIPLE MYELOMA
     Route: 048
     Dates: start: 20091112
  2. CC-5013 [Suspect]
     Route: 048
     Dates: start: 20100819
  3. DEXAMETHASONE [Suspect]
     Indication: MULTIPLE MYELOMA
     Route: 065
     Dates: start: 20091112
  4. DEXAMETHASONE [Suspect]
     Route: 065
     Dates: start: 20100819
  5. KARDEGIC [Concomitant]
     Indication: THROMBOSIS PROPHYLAXIS
     Route: 048
  6. PROPOFAN [Concomitant]
     Indication: PAIN
     Route: 048

REACTIONS (1)
  - LUNG DISORDER [None]
